FAERS Safety Report 18686739 (Version 1)
Quarter: 2020Q4

REPORT INFORMATION
  Report Type: Spontaneous
  Country: DE (occurrence: DE)
  Receive Date: 20201230
  Receipt Date: 20201230
  Transmission Date: 20210114
  Serious: No
  Sender: FDA-Public Use
  Company Number: DE-HORMOSAN PHARMA GMBH-2020-06641

PATIENT
  Age: 83 Year
  Sex: Male

DRUGS (1)
  1. LEVETIRACETAM-HORMOSAN 250 MG FILMTABLETTEN [Suspect]
     Active Substance: LEVETIRACETAM
     Indication: EPILEPSY
     Dosage: 250 MILLIGRAM, BID (ONE TABLET IN THE MORNING AND ONE IN THE EVENING)
     Route: 048

REACTIONS (4)
  - Blister [Unknown]
  - Rash [Unknown]
  - Wrong technique in product usage process [Unknown]
  - Swelling [Unknown]

NARRATIVE: CASE EVENT DATE: 20200921
